FAERS Safety Report 7505550-7 (Version None)
Quarter: 2011Q2

REPORT INFORMATION
  Report Type: 
  Country: None (occurrence: None)
  Receive Date: 20110526
  Receipt Date: 20110516
  Transmission Date: 20111010
  Serious: Yes (Other)
  Sender: FDA-Public Use
  Company Number: PHHY2011CA39492

PATIENT
  Sex: Female

DRUGS (1)
  1. EXTAVIA [Suspect]
     Dosage: UNK UKN, QW2
     Route: 058

REACTIONS (3)
  - ERYTHEMA [None]
  - BALANCE DISORDER [None]
  - FATIGUE [None]
